FAERS Safety Report 23971666 (Version 4)
Quarter: 2024Q4

REPORT INFORMATION
  Report Type: Report from Study
  Country: US (occurrence: US)
  Receive Date: 20240613
  Receipt Date: 20241015
  Transmission Date: 20250114
  Serious: Yes (Hospitalization, Other)
  Sender: TAIHO ONCOLOGY INC
  Company Number: US-OTSUKA-2022_051105

PATIENT
  Age: 79 Year
  Sex: Male
  Weight: 79 kg

DRUGS (2)
  1. INQOVI [Suspect]
     Active Substance: CEDAZURIDINE\DECITABINE
     Indication: Chronic myelomonocytic leukaemia
     Dosage: 1 DF (35 MG OF DECITABINE AND 100 MG OF CEDAZURIDINE), QD (EVERY MORNING FOR 5 DAYS EVERY 28 DAYS)
     Route: 048
     Dates: start: 20221010
  2. INQOVI [Suspect]
     Active Substance: CEDAZURIDINE\DECITABINE
     Dosage: 1 DF (35 MG DECITABINE AND 100 MG CEDAZURIDINE) QD FOR 4 DAYS EACH 42 DAY CYCLE?DAILY DOSE: 135 MILL
     Route: 048

REACTIONS (8)
  - Bladder operation [Unknown]
  - Transfusion [Unknown]
  - Platelet count decreased [Unknown]
  - Transfusion [Unknown]
  - Biopsy bone marrow [Unknown]
  - Urinary tract infection [Unknown]
  - Platelet count decreased [Unknown]
  - Inappropriate schedule of product administration [Unknown]

NARRATIVE: CASE EVENT DATE: 20240826
